FAERS Safety Report 24678051 (Version 3)
Quarter: 2024Q4

REPORT INFORMATION
  Report Type: Spontaneous
  Country: JP (occurrence: JP)
  Receive Date: 20241129
  Receipt Date: 20241204
  Transmission Date: 20250115
  Serious: Yes (Death, Hospitalization, Other)
  Sender: ALEXION PHARMACEUTICALS
  Company Number: JP-ASTRAZENECA-240130099_013120_P_1

PATIENT

DRUGS (4)
  1. DURVALUMAB [Suspect]
     Active Substance: DURVALUMAB
     Indication: Hepatocellular carcinoma
  2. DURVALUMAB [Suspect]
     Active Substance: DURVALUMAB
  3. TREMELIMUMAB [Suspect]
     Active Substance: TREMELIMUMAB
     Indication: Hepatocellular carcinoma
  4. TREMELIMUMAB [Suspect]
     Active Substance: TREMELIMUMAB

REACTIONS (4)
  - Renal failure [Fatal]
  - Liver disorder [Recovering/Resolving]
  - Acidosis [Fatal]
  - Dermatitis [Unknown]
